FAERS Safety Report 9925139 (Version 2)
Quarter: 2014Q1

REPORT INFORMATION
  Report Type: Report from Study
  Country: US (occurrence: US)
  Receive Date: 20140226
  Receipt Date: 20140226
  Transmission Date: 20141002
  Serious: Yes (Other)
  Sender: FDA-Public Use
  Company Number: US-ACTELION-A-US2014-93728

PATIENT
  Age: 68 Year
  Sex: Female

DRUGS (4)
  1. TRACLEER [Suspect]
     Indication: COR PULMONALE CHRONIC
     Dosage: 125 MG, BID
     Route: 048
     Dates: start: 20130828, end: 20140131
  2. LETAIRIS [Concomitant]
  3. COUMADIN [Concomitant]
  4. ADCIRCA [Concomitant]

REACTIONS (3)
  - Dialysis [Unknown]
  - Blood count abnormal [Recovering/Resolving]
  - Anaemia [Recovering/Resolving]
